FAERS Safety Report 7559814-1 (Version None)
Quarter: 2011Q2

REPORT INFORMATION
  Report Type: 
  Country: None (occurrence: None)
  Receive Date: 20110617
  Receipt Date: 20110617
  Transmission Date: 20111010
  Serious: No
  Sender: FDA-Public Use
  Company Number: None

PATIENT
  Age: 80 Year
  Sex: Male
  Weight: 77.1115 kg

DRUGS (1)
  1. CIPROFLOXACIN [Suspect]
     Indication: URINARY TRACT INFECTION
     Dosage: 250 MG TAB TWICE DAILY PO
     Route: 048
     Dates: start: 20110114, end: 20110128

REACTIONS (3)
  - MUSCULOSKELETAL DISCOMFORT [None]
  - TENDON PAIN [None]
  - GAIT DISTURBANCE [None]
